FAERS Safety Report 14046733 (Version 1)
Quarter: 2017Q4

REPORT INFORMATION
  Report Type: Report from Study
  Country: BR (occurrence: BR)
  Receive Date: 20171005
  Receipt Date: 20171005
  Transmission Date: 20180321
  Serious: Yes (Other)
  Sender: FDA-Public Use
  Company Number: PHHY2017BR144964

PATIENT
  Sex: Female
  Weight: 50 kg

DRUGS (1)
  1. ACLASTA [Suspect]
     Active Substance: ZOLEDRONIC ACID
     Indication: PRODUCT USED FOR UNKNOWN INDICATION
     Dosage: 1 DF, Q12MO
     Route: 042

REACTIONS (7)
  - Spinal disorder [Unknown]
  - Gait inability [Unknown]
  - Pain in extremity [Unknown]
  - Dizziness [Unknown]
  - Osteoarthritis [Unknown]
  - Arthralgia [Not Recovered/Not Resolved]
  - Osteoporosis [Unknown]
